FAERS Safety Report 8067482-8 (Version None)
Quarter: 2012Q1

REPORT INFORMATION
  Report Type: 
  Country: None (occurrence: None)
  Receive Date: 20120124
  Receipt Date: 20120112
  Transmission Date: 20120608
  Serious: Yes (Other)
  Sender: FDA-Public Use
  Company Number: IT-PFIZER INC-2012010083

PATIENT
  Age: 1 Year
  Sex: Female

DRUGS (2)
  1. IBUPROFEN [Suspect]
  2. IBUPROFEN [Suspect]
     Indication: INFLUENZA
     Dosage: 5 ML DAILY (4 DOSES TOTAL)
     Route: 048
     Dates: start: 20110120, end: 20110123

REACTIONS (2)
  - CYANOSIS [None]
  - BRADYPHRENIA [None]
